FAERS Safety Report 8714081 (Version 5)
Quarter: 2014Q2

REPORT INFORMATION
  Report Type: Report from Study
  Country: BR (occurrence: BR)
  Receive Date: 20120808
  Receipt Date: 20140505
  Transmission Date: 20141212
  Serious: Yes (Life-Threatening, Other)
  Sender: FDA-Public Use
  Company Number: BR-ROCHE-765209

PATIENT
  Age: 62 Year
  Sex: Female
  Weight: 43 kg

DRUGS (23)
  1. ACTEMRA [Suspect]
     Indication: RHEUMATOID ARTHRITIS
     Dosage: DOSE:UNKNOWN, ROUTE :ENDOVENOUS
     Route: 042
     Dates: start: 20090626
  2. ACTEMRA [Suspect]
     Route: 042
     Dates: start: 20090629
  3. ACTEMRA [Suspect]
     Route: 042
     Dates: start: 20090828
  4. ACTEMRA [Suspect]
     Route: 042
     Dates: start: 200909
  5. ACTEMRA [Suspect]
     Route: 042
     Dates: start: 200910
  6. ACTEMRA [Suspect]
     Route: 042
     Dates: start: 200911
  7. ACTEMRA [Suspect]
     Route: 042
     Dates: start: 200912
  8. ACTEMRA [Suspect]
     Route: 042
     Dates: start: 200901
  9. ACTEMRA [Suspect]
     Route: 042
     Dates: start: 200902
  10. ACTEMRA [Suspect]
     Route: 042
     Dates: start: 200903
  11. ACTEMRA [Suspect]
     Route: 042
     Dates: start: 200904
  12. ACTEMRA [Suspect]
     Route: 042
     Dates: start: 200905
  13. ACTEMRA [Suspect]
     Route: 042
     Dates: start: 200906
  14. ACTEMRA [Suspect]
     Route: 042
     Dates: start: 20090926, end: 20100601
  15. MABTHERA [Suspect]
     Indication: RHEUMATOID ARTHRITIS
     Route: 065
     Dates: start: 2012, end: 2012
  16. CITONEURIN [Concomitant]
     Route: 065
  17. AMLODIPINE BESYLATE [Concomitant]
     Dosage: DRUG: TENSALIV,  ROUTE: NOT INFORMED.DOSE: 5 MG
     Route: 065
  18. DIPYRONE [Concomitant]
     Indication: PAIN
     Dosage: FREQUENCY: AS NEEDED.
     Route: 065
  19. FOLIC ACID [Concomitant]
  20. VITAMIN C [Concomitant]
  21. CAPTOPRIL [Concomitant]
  22. RIVOTRIL [Concomitant]
  23. PREDNISOLONE [Concomitant]
     Dosage: FREQUENCY NOT REPORTED
     Route: 065

REACTIONS (24)
  - Platelet count decreased [Recovered/Resolved]
  - Cataract [Not Recovered/Not Resolved]
  - Hypovitaminosis [Unknown]
  - Anaemia [Recovered/Resolved]
  - Nasopharyngitis [Recovered/Resolved]
  - Arthritis [Not Recovered/Not Resolved]
  - Immunodeficiency [Unknown]
  - Influenza [Unknown]
  - Platelet count decreased [Unknown]
  - Dental caries [Unknown]
  - Contusion [Unknown]
  - Weight decreased [Unknown]
  - Pain [Not Recovered/Not Resolved]
  - Tremor [Unknown]
  - Pharyngitis [Unknown]
  - Cataract [Not Recovered/Not Resolved]
  - Drug ineffective [Unknown]
  - Tremor [Not Recovered/Not Resolved]
  - Fall [Unknown]
  - Tooth fracture [Recovered/Resolved]
  - Pain in extremity [Not Recovered/Not Resolved]
  - Medical device pain [Unknown]
  - Haematochezia [Unknown]
  - Anaemia [Unknown]
